FAERS Safety Report 6885550-0 (Version None)
Quarter: 2010Q3

REPORT INFORMATION
  Report Type: 
  Country: None (occurrence: None)
  Receive Date: 20100729
  Receipt Date: 20080402
  Transmission Date: 20110219
  Serious: Yes (Other)
  Sender: FDA-Public Use
  Company Number: US-PFIZER INC-2008016376

PATIENT
  Sex: Male

DRUGS (3)
  1. CELEBREX [Suspect]
     Dates: start: 20071201
  2. OXYCODONE [Concomitant]
  3. HYDROCODONE BITARTRATE [Concomitant]

REACTIONS (1)
  - MYOCARDIAL INFARCTION [None]
